FAERS Safety Report 13916007 (Version 2)
Quarter: 2017Q3

REPORT INFORMATION
  Report Type: Spontaneous
  Country: US (occurrence: US)
  Receive Date: 20170829
  Receipt Date: 20170921
  Transmission Date: 20171127
  Serious: Yes (Hospitalization)
  Sender: FDA-Public Use
  Company Number: US-ASTRAZENECA-2017SE86408

PATIENT
  Age: 676 Month
  Sex: Female
  Weight: 123.4 kg

DRUGS (15)
  1. PROBIOTIC EQUATE [Concomitant]
     Route: 048
  2. IRBESARTAN. [Concomitant]
     Active Substance: IRBESARTAN
     Route: 048
  3. NOVOLOG [Concomitant]
     Active Substance: INSULIN ASPART
     Dosage: 48-54 UNITS WITH MEALS
     Route: 058
  4. LANTUS [Concomitant]
     Active Substance: INSULIN GLARGINE
     Route: 058
  5. IBUPROFEN. [Concomitant]
     Active Substance: IBUPROFEN
     Dosage: 200.0MG AS REQUIRED
     Route: 048
  6. BYETTA [Suspect]
     Active Substance: EXENATIDE
     Indication: SUPPLEMENTATION THERAPY
     Route: 058
  7. BYDUREON [Suspect]
     Active Substance: EXENATIDE
     Indication: WEIGHT CONTROL
     Route: 058
     Dates: start: 20170821
  8. KIOR-CON 8 [Concomitant]
     Indication: BLOOD POTASSIUM ABNORMAL
     Dosage: 1/750 MG EVERY DAY
  9. HYDROCHLOROTHIAZIDE. [Concomitant]
     Active Substance: HYDROCHLOROTHIAZIDE
     Route: 048
  10. VITAMIN D3 [Concomitant]
     Active Substance: CHOLECALCIFEROL
     Route: 048
  11. BYETTA [Suspect]
     Active Substance: EXENATIDE
     Indication: WEIGHT CONTROL
     Route: 058
  12. BYDUREON [Suspect]
     Active Substance: EXENATIDE
     Indication: SUPPLEMENTATION THERAPY
     Route: 058
     Dates: start: 20170821
  13. DILTIAZEM. [Concomitant]
     Active Substance: DILTIAZEM
     Route: 048
  14. MEDROXYPROGESTERONE [Concomitant]
     Active Substance: MEDROXYPROGESTERONE
     Route: 048
  15. FENTANYL. [Concomitant]
     Active Substance: FENTANYL
     Route: 062

REACTIONS (11)
  - Cataract [Not Recovered/Not Resolved]
  - Anaemia [Not Recovered/Not Resolved]
  - Off label use [Not Recovered/Not Resolved]
  - Carpal tunnel syndrome [Recovered/Resolved]
  - Therapy cessation [Recovered/Resolved]
  - Therapeutic response unexpected [Not Recovered/Not Resolved]
  - Muscular weakness [Not Recovered/Not Resolved]
  - Product use in unapproved indication [Not Recovered/Not Resolved]
  - Wrong technique in product usage process [Not Recovered/Not Resolved]
  - Injection site pain [Not Recovered/Not Resolved]
  - Device malfunction [Unknown]

NARRATIVE: CASE EVENT DATE: 201707
